FAERS Safety Report 4661909-7 (Version None)
Quarter: 2005Q2

REPORT INFORMATION
  Report Type: 
  Country: None (occurrence: None)
  Receive Date: 20050513
  Receipt Date: 20050505
  Transmission Date: 20051028
  Serious: Yes (Death)
  Sender: FDA-Public Use
  Company Number: AU-MERCK-0505AUS00050

PATIENT
  Age: 68 Year
  Sex: Male

DRUGS (1)
  1. VIOXX [Suspect]
     Route: 048
     Dates: start: 20010201, end: 20040901

REACTIONS (1)
  - CEREBROVASCULAR ACCIDENT [None]
